FAERS Safety Report 6938545-2 (Version None)
Quarter: 2010Q3

REPORT INFORMATION
  Report Type: 
  Country: None (occurrence: None)
  Receive Date: 20100824
  Receipt Date: 20100820
  Transmission Date: 20110219
  Serious: Yes (Other)
  Sender: FDA-Public Use
  Company Number: US-BAYER-200714023BWH

PATIENT
  Age: 49 Year
  Sex: Female
  Weight: 73 kg

DRUGS (7)
  1. AVELOX [Suspect]
     Indication: SINUSITIS
     Dosage: TOTAL DAILY DOSE: 400 MG  UNIT DOSE: 400 MG
     Route: 048
     Dates: start: 20070915
  2. TRAZODONE HCL [Concomitant]
  3. SUDAFED 24 HOUR [Concomitant]
     Indication: SINUS CONGESTION
     Route: 048
  4. ALEVE (CAPLET) [Concomitant]
  5. NAPROXEN [Concomitant]
  6. IBUPROFEN [Concomitant]
  7. PROTON PUMP INHIBITOR [Concomitant]
     Indication: GASTROOESOPHAGEAL REFLUX DISEASE

REACTIONS (12)
  - ANAPHYLACTIC REACTION [None]
  - CONJUNCTIVAL OEDEMA [None]
  - EYE SWELLING [None]
  - FLUSHING [None]
  - HYPOTENSION [None]
  - OEDEMA PERIPHERAL [None]
  - PRURITUS [None]
  - RASH [None]
  - RASH MACULAR [None]
  - SWELLING FACE [None]
  - SWOLLEN TONGUE [None]
  - URTICARIA [None]
